FAERS Safety Report 5163017-8 (Version None)
Quarter: 2006Q4

REPORT INFORMATION
  Report Type: 
  Country: None (occurrence: None)
  Receive Date: 20061201
  Receipt Date: 20061102
  Transmission Date: 20070319
  Serious: Yes (Hospitalization)
  Sender: FDA-Public Use
  Company Number: HQWYE230102NOV06

PATIENT
  Age: 30 Year
  Sex: Male

DRUGS (4)
  1. ENBREL [Suspect]
     Indication: PSORIATIC ARTHROPATHY
     Route: 058
     Dates: start: 20060524, end: 20060609
  2. ENBREL [Suspect]
     Route: 065
     Dates: start: 20061001
  3. ISONIAZID [Concomitant]
     Indication: PROPHYLAXIS
     Dosage: 100 MG 1X3
     Route: 048
     Dates: start: 20060324
  4. PREDNISONE TAB [Concomitant]
     Indication: PSORIATIC ARTHROPATHY
     Dosage: 16 MG 1X1
     Route: 048

REACTIONS (2)
  - FUNGAL INFECTION [None]
  - NAIL INFECTION [None]
